FAERS Safety Report 4721985-X (Version None)
Quarter: 2005Q3

REPORT INFORMATION
  Report Type: 
  Country: None (occurrence: None)
  Receive Date: 20050722
  Receipt Date: 20050713
  Transmission Date: 20060218
  Serious: Yes (Other)
  Sender: FDA-Public Use
  Company Number: GB-BRISTOL-MYERS SQUIBB COMPANY-13035340

PATIENT
  Age: 57 Year
  Sex: Female

DRUGS (1)
  1. NYSTATIN [Suspect]
     Indication: ORAL CANDIDIASIS
     Route: 048
     Dates: start: 20050531, end: 20050603

REACTIONS (1)
  - DERMATITIS EXFOLIATIVE [None]
